FAERS Safety Report 15383312 (Version 1)
Quarter: 2018Q3

REPORT INFORMATION
  Report Type: Spontaneous
  Country: US (occurrence: US)
  Receive Date: 20180913
  Receipt Date: 20180913
  Transmission Date: 20181010
  Serious: No
  Sender: FDA-Public Use
  Company Number: US-ASTELLAS-2017US042912

PATIENT
  Age: 82 Year
  Sex: Male

DRUGS (2)
  1. XTANDI [Suspect]
     Active Substance: ENZALUTAMIDE
     Route: 048
     Dates: start: 20171025
  2. XTANDI [Suspect]
     Active Substance: ENZALUTAMIDE
     Indication: PROSTATE CANCER
     Dosage: 160 MG, ONCE DAILY (4X40 MG)
     Route: 048
     Dates: start: 20170926, end: 20170929

REACTIONS (6)
  - Arthralgia [Recovered/Resolved]
  - Pain in extremity [Unknown]
  - Movement disorder [Unknown]
  - Bone pain [Recovered/Resolved]
  - Treatment noncompliance [Unknown]
  - Back pain [Unknown]

NARRATIVE: CASE EVENT DATE: 20170930
